FAERS Safety Report 16565089 (Version 1)
Quarter: 2019Q3

REPORT INFORMATION
  Report Type: Spontaneous
  Country: US (occurrence: US)
  Receive Date: 20190712
  Receipt Date: 20190712
  Transmission Date: 20191004
  Serious: Yes (Life-Threatening)
  Sender: FDA-Public Use
  Company Number: US-ASTRAZENECA-2019SE99635

PATIENT
  Sex: Female

DRUGS (2)
  1. SEROQUEL [Suspect]
     Active Substance: QUETIAPINE FUMARATE
     Indication: INSOMNIA
     Dosage: DECREASING THE LOW DOSE OF 25 MG, A QUARTER PILL AT A TIME OVER WEEKS, FOR 4 MONTHS
     Route: 048
  2. SEROQUEL [Suspect]
     Active Substance: QUETIAPINE FUMARATE
     Indication: INSOMNIA
     Dosage: GENERIC UNKNOWN
     Route: 048

REACTIONS (10)
  - Suicide attempt [Unknown]
  - Vertigo [Unknown]
  - Post viral fatigue syndrome [Unknown]
  - Dizziness [Unknown]
  - Chronic fatigue syndrome [Unknown]
  - Tinnitus [Unknown]
  - Balance disorder [Unknown]
  - Weight increased [Unknown]
  - Tremor [Unknown]
  - Gait disturbance [Unknown]
